APPROVED DRUG PRODUCT: TEFLARO
Active Ingredient: CEFTAROLINE FOSAMIL
Strength: 600MG/VIAL
Dosage Form/Route: POWDER;INTRAVENOUS
Application: N200327 | Product #002 | TE Code: AP
Applicant: ABBVIE INC
Approved: Oct 29, 2010 | RLD: Yes | RS: Yes | Type: RX

PATENTS:
Patent 9629861 | Expires: Sep 21, 2030
Patent 8247400 | Expires: Feb 10, 2031